FAERS Safety Report 12688511 (Version 3)
Quarter: 2017Q4

REPORT INFORMATION
  Report Type: Other
  Country: JP (occurrence: JP)
  Receive Date: 20160826
  Receipt Date: 20171208
  Transmission Date: 20180320
  Serious: Yes (Life-Threatening)
  Sender: FDA-Public Use
  Company Number: JP-DSJP-DSJ-2016-127833

PATIENT
  Age: 81 Year
  Sex: Male
  Weight: 68 kg

DRUGS (12)
  1. STARSIS [Concomitant]
     Active Substance: NATEGLINIDE
     Dosage: UNK
     Route: 048
  2. ISOTONIC SODIUM CHLORIDE SOLUTION [Concomitant]
     Active Substance: SODIUM CHLORIDE
     Dosage: UNK
     Route: 065
  3. EFIENT [Concomitant]
     Active Substance: PRASUGREL HYDROCHLORIDE
     Dosage: UNK
     Route: 048
  4. NITOROL R [Concomitant]
     Active Substance: ISOSORBIDE DINITRATE
     Dosage: UNK
     Route: 048
  5. LIVALO [Concomitant]
     Active Substance: PITAVASTATIN CALCIUM
     Dosage: UNK
     Route: 048
  6. OLMETEC [Suspect]
     Active Substance: OLMESARTAN MEDOXOMIL
     Indication: HYPERTENSION
     Dosage: 10 MG, QD
     Route: 048
     Dates: start: 201110, end: 20160623
  7. BUFFERIN [Concomitant]
     Active Substance: ASPIRIN
     Dosage: UNK
     Route: 048
  8. CONIEL [Concomitant]
     Active Substance: BENIDIPINE HYDROCHLORIDE
     Dosage: UNK
     Route: 048
  9. HEPARIN [Concomitant]
     Active Substance: HEPARIN SODIUM
     Dosage: UNK
     Route: 065
  10. IOPAQUE [Suspect]
     Active Substance: IOHEXOL
     Indication: CORONARY ANGIOPLASTY
     Dosage: 100 ML, ONCE
     Route: 042
     Dates: start: 20160623, end: 20160623
  11. METGLUCO [Concomitant]
     Active Substance: METFORMIN HYDROCHLORIDE
     Dosage: UNK
     Route: 048
  12. MILLISROL [Concomitant]
     Dosage: UNK
     Route: 022

REACTIONS (2)
  - Laryngeal oedema [Recovered/Resolved]
  - Angioedema [Recovered/Resolved]

NARRATIVE: CASE EVENT DATE: 20160623
